FAERS Safety Report 13286164 (Version 1)
Quarter: 2017Q1

REPORT INFORMATION
  Report Type: Report from Study
  Country: US (occurrence: US)
  Receive Date: 20170301
  Receipt Date: 20170301
  Transmission Date: 20170428
  Serious: Yes (Hospitalization, Other)
  Sender: FDA-Public Use
  Company Number: US-ACTELION-A-US2016-132371

PATIENT
  Age: 55 Year
  Sex: Male
  Weight: 85.71 kg

DRUGS (2)
  1. OPSUMIT [Suspect]
     Active Substance: MACITENTAN
     Indication: PULMONARY ARTERIAL HYPERTENSION
     Dosage: 10 MG, QD
     Route: 048
  2. REVATIO [Concomitant]
     Active Substance: SILDENAFIL CITRATE

REACTIONS (6)
  - Fluid retention [Unknown]
  - Dyspnoea [Unknown]
  - Loss of consciousness [Unknown]
  - Oxygen saturation decreased [Unknown]
  - Lung disorder [Unknown]
  - Dyspnoea exertional [Unknown]
